FAERS Safety Report 8355636-2 (Version None)
Quarter: 2012Q2

REPORT INFORMATION
  Report Type: 
  Country: None (occurrence: None)
  Receive Date: 20120514
  Receipt Date: 20120503
  Transmission Date: 20120825
  Serious: Yes (Other)
  Sender: FDA-Public Use
  Company Number: US-BIOGENIDEC-2008BI007183

PATIENT
  Age: 61 Year
  Sex: Female

DRUGS (1)
  1. AVONEX [Suspect]
     Indication: MULTIPLE SCLEROSIS
     Route: 030
     Dates: start: 20071115, end: 20080331

REACTIONS (6)
  - BLOOD ALKALINE PHOSPHATASE INCREASED [None]
  - INFLUENZA LIKE ILLNESS [None]
  - ALANINE AMINOTRANSFERASE INCREASED [None]
  - BILIARY CIRRHOSIS PRIMARY [None]
  - HEPATIC FUNCTION ABNORMAL [None]
  - ASPARTATE AMINOTRANSFERASE INCREASED [None]
